FAERS Safety Report 6871153-0 (Version None)
Quarter: 2010Q3

REPORT INFORMATION
  Report Type: 
  Country: None (occurrence: None)
  Receive Date: 20100723
  Receipt Date: 20100707
  Transmission Date: 20110219
  Serious: Yes (Hospitalization)
  Sender: FDA-Public Use
  Company Number: US-ROCHE-701489

PATIENT
  Sex: Female
  Weight: 81.6 kg

DRUGS (16)
  1. TOCILIZUMAB [Suspect]
     Indication: RHEUMATOID ARTHRITIS
     Dosage: LAST DOSE PRIOR TO SAE: 09 FEBRUARY 2010.
     Route: 042
     Dates: start: 20091216
  2. ADVAIR DISKUS 100/50 [Concomitant]
     Dosage: ONE PUFF BID.
     Dates: start: 20081119
  3. ASPIRIN [Concomitant]
     Route: 048
     Dates: start: 19801123
  4. BENAZEPRIL HYDROCHLORIDE [Concomitant]
     Route: 048
     Dates: start: 20070713
  5. CLONIDINE [Concomitant]
     Route: 048
  6. FISH OIL [Concomitant]
     Dates: start: 20090423
  7. FLUTICASONE [Concomitant]
     Dosage: 2 SPRAYS IN EACH NOSTRIL DAILY.
     Route: 050
     Dates: start: 20070620
  8. PERCOCET [Concomitant]
     Indication: PAIN
  9. MULTI-VITAMIN [Concomitant]
     Dates: start: 19991123
  10. IBUPROFEN [Concomitant]
     Dates: start: 20040223
  11. HYDROCODONE BITARTRATE + ACETAMINOPHEN [Concomitant]
     Dosage: HYDROCODONE-ACETAMINOPHEN
     Dates: start: 20100104
  12. AMLODIPINE [Concomitant]
     Route: 048
     Dates: start: 20100216
  13. KETOTIFEN FUMARATE [Concomitant]
     Dates: start: 20090408
  14. OMEPRAZOLE [Concomitant]
     Dates: start: 20080902
  15. ROSAC [Concomitant]
     Dosage: ROSAC WASH
     Dates: start: 20080522
  16. TRETINOIN CREAM [Concomitant]
     Dates: start: 20080522

REACTIONS (4)
  - BLOOD GLUCOSE INCREASED [None]
  - PLATELET COUNT INCREASED [None]
  - SMALL INTESTINAL OBSTRUCTION [None]
  - WHITE BLOOD CELL COUNT INCREASED [None]
